FAERS Safety Report 21658569 (Version 3)
Quarter: 2023Q1

REPORT INFORMATION
  Report Type: Spontaneous
  Country: JP (occurrence: JP)
  Receive Date: 20221129
  Receipt Date: 20230103
  Transmission Date: 20230418
  Serious: No
  Sender: FDA-Public Use
  Company Number: JP-JNJFOC-20221120584

PATIENT
  Age: 3 Decade
  Sex: Male

DRUGS (1)
  1. SIMPONI [Suspect]
     Active Substance: GOLIMUMAB
     Indication: Colitis ulcerative
     Dosage: DOSE UNKNOWN?STRENGTH: 50.00 MG / 0.50 ML
     Route: 058

REACTIONS (5)
  - Device deployment issue [Recovered/Resolved]
  - Injury associated with device [Recovered/Resolved]
  - Drug delivery system malfunction [Unknown]
  - Administration site pain [Unknown]
  - Needle issue [Unknown]

NARRATIVE: CASE EVENT DATE: 20221108
